FAERS Safety Report 5003334-5 (Version None)
Quarter: 2006Q2

REPORT INFORMATION
  Report Type: 
  Country: None (occurrence: None)
  Receive Date: 20060511
  Receipt Date: 20060428
  Transmission Date: 20061013
  Serious: Yes (Death, Hospitalization)
  Sender: FDA-Public Use
  Company Number: 2006059238

PATIENT
  Age: 81 Year
  Sex: Female
  Weight: 61 kg

DRUGS (1)
  1. SU-011,248 (SUNITINIB MALEATE) SUTENT [Suspect]
     Indication: GASTROINTESTINAL STROMAL TUMOUR
     Dosage: 50 MG (50 MG CYCLIC) ORAL
     Route: 048
     Dates: start: 20060419, end: 20060427

REACTIONS (7)
  - DISEASE PROGRESSION [None]
  - DYSSTASIA [None]
  - FALL [None]
  - HYPERCOAGULATION [None]
  - MONOPLEGIA [None]
  - TUMOUR FLARE [None]
  - VASCULAR OCCLUSION [None]
